FAERS Safety Report 12924764 (Version 1)
Quarter: 2016Q4

REPORT INFORMATION
  Report Type: Spontaneous
  Country: PT (occurrence: PT)
  Receive Date: 20161109
  Receipt Date: 20161109
  Transmission Date: 20170207
  Serious: Yes (Hospitalization)
  Sender: FDA-Public Use
  Company Number: PT-SA-2016SA198816

PATIENT
  Age: 83 Year
  Sex: Female

DRUGS (1)
  1. ENOXAPARIN SODIUM. [Suspect]
     Active Substance: ENOXAPARIN SODIUM
     Indication: ANTICOAGULANT THERAPY
     Route: 058

REACTIONS (4)
  - Haemodynamic instability [Unknown]
  - Abdominal pain [Unknown]
  - Abdominal mass [Unknown]
  - Haemoglobin decreased [Unknown]
